FAERS Safety Report 8641871 (Version 3)
Quarter: 2013Q1

REPORT INFORMATION
  Report Type: Spontaneous
  Country: BR (occurrence: BR)
  Receive Date: 20120628
  Receipt Date: 20130208
  Transmission Date: 20140127
  Serious: No
  Sender: FDA-Public Use
  Company Number: PHHY2012BR055244

PATIENT
  Sex: Female

DRUGS (4)
  1. DIOVAN HCT [Suspect]
     Dosage: 1 DF, (160/12.5 MG) QD
     Route: 048
     Dates: start: 201207
  2. DIOVAN TRIPLE [Suspect]
     Indication: HYPERTENSION
     Dosage: 1 DF, (160/12.5/5 MG) QD
     Route: 048
     Dates: end: 201208
  3. DIOVAN AMLO FIX [Suspect]
     Indication: HYPERTENSION
     Dosage: 1 DF, (320/5 MG) QD
     Route: 048
     Dates: start: 201208
  4. CRESTOR [Concomitant]
     Dosage: UNK UKN, UNK

REACTIONS (3)
  - Fluid retention [Recovering/Resolving]
  - Blood pressure inadequately controlled [Not Recovered/Not Resolved]
  - Blood pressure decreased [Recovered/Resolved]
